FAERS Safety Report 24707263 (Version 1)
Quarter: 2024Q4

REPORT INFORMATION
  Report Type: Spontaneous
  Country: FR (occurrence: FR)
  Receive Date: 20241206
  Receipt Date: 20241206
  Transmission Date: 20250115
  Serious: Yes (Hospitalization, Other)
  Sender: BAXTER
  Company Number: None

PATIENT
  Age: 66 Year
  Sex: Female
  Weight: 51 kg

DRUGS (5)
  1. BENDAMUSTINE [Suspect]
     Active Substance: BENDAMUSTINE
     Indication: Marginal zone lymphoma refractory
     Dosage: (DURATION: 84 DAYS) (DOSAGE TEXT: ON D1 AND D2) (BENDAMUSTINE (HYDROCHLORIDE) MONOHYDRATE) 90 MG/M2
     Route: 042
     Dates: start: 20230510, end: 20230802
  2. RITUXIMAB [Suspect]
     Active Substance: RITUXIMAB
     Indication: Marginal zone lymphoma stage IV
     Dosage: (DURATION: 131 DAYS) (RITUXIMAB (MAMMAL/HAMSTER/CHO CELLS)) 500 MG PER 1 WEEK
     Route: 042
     Dates: start: 20230324, end: 20230802
  3. BACTRIM [Concomitant]
     Active Substance: SULFAMETHOXAZOLE\TRIMETHOPRIM
     Indication: Prophylaxis
     Dosage: (DOSAGE TEXT: 1 800/160-MG TABLET ON MONDAYS/WEDNESDAYS/FRIDAYS) 800 MG PER 2 DAY
     Route: 048
  4. VALACYCLOVIR HYDROCHLORIDE [Concomitant]
     Active Substance: VALACYCLOVIR HYDROCHLORIDE
     Indication: Prophylaxis
     Dosage: 500 MG PER 1 DAY
     Route: 065
  5. FOLIC ACID [Concomitant]
     Active Substance: FOLIC ACID
     Indication: Prophylaxis
     Dosage: (DOSAGE TEXT: 1 5-MG TABLET ON TUESDAYS/THURSDAYS/SATURDAYS) 5 MG PER 2 DAY
     Route: 048

REACTIONS (2)
  - Breast cancer in situ [Recovered/Resolved with Sequelae]
  - Basal cell carcinoma [Recovered/Resolved]

NARRATIVE: CASE EVENT DATE: 20240301
